FAERS Safety Report 15552790 (Version 4)
Quarter: 2018Q4

REPORT INFORMATION
  Report Type: Spontaneous
  Country: US (occurrence: US)
  Receive Date: 20181025
  Receipt Date: 20181206
  Transmission Date: 20190205
  Serious: No
  Sender: FDA-Public Use
  Company Number: US-AMGEN-USASP2018147904

PATIENT
  Age: 63 Year
  Sex: Male
  Weight: 75 kg

DRUGS (79)
  1. ARANESP [Suspect]
     Active Substance: DARBEPOETIN ALFA
     Dosage: 80 MUG, (ONE TIME) UNK
     Route: 042
     Dates: start: 20180116, end: 20180116
  2. ARANESP [Suspect]
     Active Substance: DARBEPOETIN ALFA
     Dosage: 80 MUG, (ONE TIME) UNK
     Route: 042
     Dates: start: 20180123, end: 20180123
  3. ARANESP [Suspect]
     Active Substance: DARBEPOETIN ALFA
     Dosage: 200 MCG, UNK
     Route: 042
     Dates: start: 20180403, end: 201804
  4. ARANESP [Suspect]
     Active Substance: DARBEPOETIN ALFA
     Dosage: 200 MUG, UNK
     Route: 042
     Dates: start: 201804, end: 20180410
  5. ARANESP [Suspect]
     Active Substance: DARBEPOETIN ALFA
     Dosage: 150 MUG, QWK
     Route: 042
     Dates: start: 20180417, end: 20180417
  6. ARANESP [Suspect]
     Active Substance: DARBEPOETIN ALFA
     Dosage: 50 MUG, QWK
     Route: 042
     Dates: start: 20180424, end: 201804
  7. ARANESP [Suspect]
     Active Substance: DARBEPOETIN ALFA
     Dosage: 150 MUG, QWK
     Route: 042
     Dates: start: 20180424, end: 20180424
  8. ARANESP [Suspect]
     Active Substance: DARBEPOETIN ALFA
     Dosage: 80 MUG, (ONE TIME) UNK
     Route: 042
     Dates: start: 20180703, end: 20180703
  9. ARANESP [Suspect]
     Active Substance: DARBEPOETIN ALFA
     Dosage: 75 MUG, (ONE TIME) UNK
     Route: 042
     Dates: start: 20180814, end: 20180814
  10. ARANESP [Suspect]
     Active Substance: DARBEPOETIN ALFA
     Dosage: 75 MUG, (ONE TIME) UNK
     Route: 042
     Dates: start: 20180828, end: 20180828
  11. ARANESP [Suspect]
     Active Substance: DARBEPOETIN ALFA
     Dosage: 75 MUG, (ONE TIME) UNK
     Route: 042
     Dates: start: 20180904, end: 20180904
  12. ARANESP [Suspect]
     Active Substance: DARBEPOETIN ALFA
     Dosage: 120 MUG, UNK
     Route: 065
     Dates: start: 20181101
  13. ASPIRIN 81 [Concomitant]
     Active Substance: ASPIRIN
     Dosage: 81 MG, QD
     Route: 048
  14. PNEUMOCOCCAL VACCINE CONJ 13V (CRM197) [Concomitant]
     Dosage: UNK
     Dates: start: 20140502
  15. PNEUMOCOCCAL VACCINE POLYSACCH 23V [Concomitant]
     Dosage: UNK
     Dates: start: 20101023
  16. ARANESP [Suspect]
     Active Substance: DARBEPOETIN ALFA
     Dosage: 80 MUG, (ONE TIME) UNK
     Route: 042
     Dates: start: 20180130, end: 20180130
  17. ARANESP [Suspect]
     Active Substance: DARBEPOETIN ALFA
     Dosage: 60 MCG, QWK
     Route: 042
     Dates: start: 20180405, end: 201804
  18. ARANESP [Suspect]
     Active Substance: DARBEPOETIN ALFA
     Dosage: 80 MUG, (ONE TIME) UNK
     Route: 042
     Dates: start: 20180612, end: 20180612
  19. ARANESP [Suspect]
     Active Substance: DARBEPOETIN ALFA
     Dosage: 80 MUG, (ONE TIME) UNK
     Route: 042
     Dates: start: 20180626, end: 20180626
  20. ARANESP [Suspect]
     Active Substance: DARBEPOETIN ALFA
     Dosage: 75 MUG, (ONE TIME) UNK
     Route: 042
     Dates: start: 20180807, end: 20180807
  21. TUMS [Concomitant]
     Active Substance: CALCIUM CARBONATE
     Dosage: 1000 MG, TID
     Route: 048
  22. CITALOPRAM [Concomitant]
     Active Substance: CITALOPRAM HYDROBROMIDE
     Indication: AFFECTIVE DISORDER
     Dosage: UNK
  23. ARANESP [Suspect]
     Active Substance: DARBEPOETIN ALFA
     Dosage: 80 MUG, (ONE TIME) UNK
     Route: 042
     Dates: start: 20180109, end: 20180109
  24. ARANESP [Suspect]
     Active Substance: DARBEPOETIN ALFA
     Dosage: 80 MUG, (ONE TIME) UNK
     Route: 042
     Dates: start: 20180206, end: 20180206
  25. ARANESP [Suspect]
     Active Substance: DARBEPOETIN ALFA
     Dosage: 100 MUG, (ONE TIME ) UNK
     Route: 042
     Dates: start: 20181030
  26. NITROSTAT [Concomitant]
     Active Substance: NITROGLYCERIN
     Indication: CHEST PAIN
     Dosage: 0.4 MG, AS NECESSARY
     Route: 060
  27. SYSTANE ULTRA [Concomitant]
     Active Substance: POLYETHYLENE GLYCOL 400\PROPYLENE GLYCOL
     Indication: DRY EYE
     Dosage: 1 GTT, AS NECESSARY (0.4-0.3 % INTO BOTH EYES EVERY 4 HOURS)
     Route: 047
  28. HEPATITIS B VACCINE [Concomitant]
     Active Substance: HEPATITIS B VIRUS VACCINE
     Dosage: UNK
     Dates: start: 20130815
  29. TDAP [Concomitant]
     Active Substance: TETANUS TOXOID, REDUCED DIPHTHERIA TOXOID AND ACELLULAR PERTUSSIS VACCINE ADSORBED, TDAP
     Dosage: UNK
     Dates: start: 20161023
  30. LASIX [Concomitant]
     Active Substance: FUROSEMIDE
     Dosage: 80 MG, QD
     Route: 048
  31. ARANESP [Suspect]
     Active Substance: DARBEPOETIN ALFA
     Dosage: 80 MUG, (ONE TIME) UNK
     Route: 042
     Dates: start: 20180619, end: 20180619
  32. ARANESP [Suspect]
     Active Substance: DARBEPOETIN ALFA
     Dosage: 80 MUG, (ONE TIME) UNK
     Route: 042
     Dates: start: 20180710, end: 20180710
  33. ARANESP [Suspect]
     Active Substance: DARBEPOETIN ALFA
     Dosage: 80 MUG, (ONE TIME) UNK
     Route: 042
     Dates: start: 20180717, end: 20180717
  34. ARANESP [Suspect]
     Active Substance: DARBEPOETIN ALFA
     Dosage: 80 MUG, (ONE TIME) UNK
     Route: 042
     Dates: start: 20180731, end: 20180731
  35. ARANESP [Suspect]
     Active Substance: DARBEPOETIN ALFA
     Dosage: 75 MUG, (ONE TIME ) UNK
     Route: 042
     Dates: start: 20180821, end: 20180821
  36. ARANESP [Suspect]
     Active Substance: DARBEPOETIN ALFA
     Dosage: 100 MUG, (ONE TIME ) UNK
     Route: 042
     Dates: start: 20181023, end: 20181023
  37. CELEXA [Concomitant]
     Active Substance: CITALOPRAM HYDROBROMIDE
     Dosage: 10 MG, QD
     Route: 048
  38. ROBITUSSIN DM [Concomitant]
     Active Substance: DEXTROMETHORPHAN HYDROBROMIDE\GUAIFENESIN
     Dosage: 10 ML (10-100 MG/5 ML), AS NECESSARY
     Route: 048
  39. APRESOLINE HYDROCHLORIDE [Concomitant]
     Active Substance: HYDRALAZINE HYDROCHLORIDE
     Indication: CORONARY ARTERY DISEASE
     Dosage: 25 MG, TID
     Route: 048
  40. MELATONIN [Concomitant]
     Active Substance: MELATONIN
     Dosage: 5 MG, QHS
     Route: 048
  41. NITRO-DUR [Concomitant]
     Active Substance: NITROGLYCERIN
     Dosage: 1 DF, QD (0.2 MG/HR)
  42. THIAMINE. [Concomitant]
     Active Substance: THIAMINE
     Dosage: 50 MG, QD
     Route: 048
  43. TUBERCULIN PPD [Concomitant]
     Active Substance: TUBERCULIN PURIFIED PROTEIN DERIVATIVE
     Dosage: UNK
     Dates: start: 20150212
  44. TOPROL XL [Concomitant]
     Active Substance: METOPROLOL SUCCINATE
     Dosage: 50 MG, QD
     Route: 048
  45. ARANESP [Suspect]
     Active Substance: DARBEPOETIN ALFA
     Dosage: 60 MUG, QWK
     Route: 042
     Dates: start: 20180102, end: 20180102
  46. ARANESP [Suspect]
     Active Substance: DARBEPOETIN ALFA
     Dosage: 80 MUG, (ONE TIME) UNK
     Route: 042
     Dates: start: 20180213, end: 20180213
  47. TYLENOL [Concomitant]
     Active Substance: ACETAMINOPHEN
     Dosage: 325 MG (Q4HR), AS NECESSARY
     Route: 048
  48. PROVENTIL [Concomitant]
     Active Substance: ALBUTEROL
     Indication: COUGH
     Dosage: 2.5 MG-0.5 MG/3 ML, (Q4H) AS NECESSARY
     Route: 045
  49. NORVASC [Concomitant]
     Active Substance: AMLODIPINE BESYLATE
     Dosage: 10 MG, QHS
     Route: 048
  50. PEPCID [Concomitant]
     Active Substance: FAMOTIDINE
     Dosage: 20 MG, QHS
     Route: 048
  51. FLONASE [Concomitant]
     Active Substance: FLUTICASONE PROPIONATE
     Dosage: 50 MCG, BID
     Route: 045
  52. SEROQUEL [Concomitant]
     Active Substance: QUETIAPINE FUMARATE
     Dosage: 50 MG, BID
     Route: 048
  53. INFLUENZA VACCINE [Concomitant]
     Active Substance: INFLUENZA VIRUS VACCINE
     Dosage: UNK
     Dates: start: 20121003
  54. VENOFER [Concomitant]
     Active Substance: IRON SUCROSE
     Dosage: UNK
  55. ARANESP [Suspect]
     Active Substance: DARBEPOETIN ALFA
     Dosage: 60 MUG, QWK
     Route: 065
     Dates: start: 20171226
  56. ARANESP [Suspect]
     Active Substance: DARBEPOETIN ALFA
     Dosage: 150 MUG, QWK
     Route: 042
     Dates: start: 20180417, end: 20180419
  57. ARANESP [Suspect]
     Active Substance: DARBEPOETIN ALFA
     Dosage: 100 MUG, (ONE TIME ) UNK
     Route: 042
     Dates: start: 20180501, end: 20180501
  58. LIPITOR [Concomitant]
     Active Substance: ATORVASTATIN CALCIUM
     Dosage: 10 MG, QHS
     Route: 048
  59. BENADRYL [Concomitant]
     Active Substance: DIPHENHYDRAMINE HYDROCHLORIDE
     Indication: PRURITUS
     Dosage: 25 MG (Q12H), AS NECESSARY
     Route: 048
  60. XALATAN [Concomitant]
     Active Substance: LATANOPROST
     Dosage: 1 GTT, QHS (0.005 %, INTO BOTH EYES)
     Route: 047
  61. NEPRO WITH CARB STEADY [Concomitant]
     Dosage: 1 CAN, BID
     Route: 048
  62. SYSTANE ULTRA [Concomitant]
     Active Substance: POLYETHYLENE GLYCOL 400\PROPYLENE GLYCOL
     Dosage: 1 GTT, BID
     Route: 047
  63. RENVELA [Concomitant]
     Active Substance: SEVELAMER CARBONATE
     Dosage: 1600 MG, TID
     Route: 048
  64. ARANESP [Suspect]
     Active Substance: DARBEPOETIN ALFA
     Dosage: 60 MUG, QWK
     Route: 042
     Dates: start: 20180327, end: 20180327
  65. ARANESP [Suspect]
     Active Substance: DARBEPOETIN ALFA
     Dosage: 80 MUG, (ONE TIME) UNK
     Route: 042
     Dates: start: 20180724, end: 20180724
  66. NOVOLOG [Concomitant]
     Active Substance: INSULIN ASPART
     Indication: TYPE 2 DIABETES MELLITUS
     Dosage: (2 -11) UNIT, TID
     Route: 058
  67. LEVEMIR [Concomitant]
     Active Substance: INSULIN DETEMIR
     Dosage: 13 UNIT, QHS
     Route: 058
  68. LEVOTHYROXINE. [Concomitant]
     Active Substance: LEVOTHYROXINE
     Dosage: 100 MCG, QD
     Route: 048
  69. EMLA [Concomitant]
     Active Substance: LIDOCAINE\PRILOCAINE
     Dosage: 1 DF, 3 TIMES/WK (2.5-2.5 %)
  70. IMODIUM A-D [Concomitant]
     Active Substance: LOPERAMIDE HYDROCHLORIDE
     Indication: DIARRHOEA
     Dosage: 2 MG, Q6H AS NECESSARY
     Route: 048
  71. METOPROLOL TARTRATE. [Concomitant]
     Active Substance: METOPROLOL TARTRATE
     Indication: CORONARY ARTERY DISEASE
     Dosage: 50 MG, QD
     Route: 048
  72. ZOFRAN [Concomitant]
     Active Substance: ONDANSETRON HYDROCHLORIDE
     Dosage: 4 MG, (Q4H) AS NECESSARY
     Route: 048
  73. ARANESP [Suspect]
     Active Substance: DARBEPOETIN ALFA
     Indication: END STAGE RENAL DISEASE
     Dosage: 25 MUG, UNK
     Route: 065
     Dates: start: 2014, end: 2018
  74. ARANESP [Suspect]
     Active Substance: DARBEPOETIN ALFA
     Dosage: 60 MUG, QWK
     Route: 065
     Dates: start: 20171108
  75. ARANESP [Suspect]
     Active Substance: DARBEPOETIN ALFA
     Dosage: 60 MUG, QWK
     Route: 065
     Dates: start: 20171219
  76. ARANESP [Suspect]
     Active Substance: DARBEPOETIN ALFA
     Dosage: 60 MUG, QWK
     Route: 042
     Dates: start: 20181009, end: 20181011
  77. ARANESP [Suspect]
     Active Substance: DARBEPOETIN ALFA
     Dosage: 100 MUG, (ONE TIME ) UNK
     Route: 042
     Dates: start: 20181016, end: 20181016
  78. COMBIGAN [Concomitant]
     Active Substance: BRIMONIDINE TARTRATE\TIMOLOL MALEATE
     Dosage: 1 GTT, BID, (0.2-0.5%)
     Route: 047
  79. KLONOPIN [Concomitant]
     Active Substance: CLONAZEPAM
     Dosage: 0.5 MG, 3 TIMES/WK (TUESDAY, THURSDAY, AND SATURDAY)
     Route: 048

REACTIONS (9)
  - Otitis externa [Unknown]
  - Peripheral swelling [Unknown]
  - Limb injury [Unknown]
  - Hypergammaglobulinaemia benign monoclonal [Unknown]
  - Protein total increased [Unknown]
  - Tremor [Unknown]
  - Hypercalcaemia [Unknown]
  - Upper respiratory tract congestion [Unknown]
  - Haemoglobin decreased [Recovered/Resolved]

NARRATIVE: CASE EVENT DATE: 2016
